FAERS Safety Report 14458684 (Version 1)
Quarter: 2018Q1

REPORT INFORMATION
  Report Type: Spontaneous
  Country: US (occurrence: US)
  Receive Date: 20180130
  Receipt Date: 20180130
  Transmission Date: 20180509
  Serious: No
  Sender: FDA-Public Use
  Company Number: US-BAUSCH-BL-2017-024728

PATIENT
  Age: 59 Year
  Sex: Female
  Weight: 59.02 kg

DRUGS (2)
  1. MURO 128 [Suspect]
     Active Substance: SODIUM CHLORIDE
     Indication: SUPERFICIAL INJURY OF EYE
     Dosage: PATIENT APPLIED 1/4 INCH OF MURO TO THE LOWER RIGHT EYELID
     Route: 047
     Dates: start: 20170818, end: 2017
  2. ZYLET [Suspect]
     Active Substance: LOTEPREDNOL ETABONATE\TOBRAMYCIN
     Indication: BACTERIAL INFECTION
     Dosage: ONE DROP IN THE RIGHT EYE
     Route: 047
     Dates: start: 20170817

REACTIONS (4)
  - Off label use [Recovered/Resolved]
  - Eye disorder [Unknown]
  - Eye irritation [Recovering/Resolving]
  - Superficial injury of eye [Unknown]

NARRATIVE: CASE EVENT DATE: 20170818
